FAERS Safety Report 11303730 (Version 1)
Quarter: 2015Q3

REPORT INFORMATION
  Report Type: Spontaneous
  Country: US (occurrence: US)
  Receive Date: 20150723
  Receipt Date: 20150723
  Transmission Date: 20151125
  Serious: No
  Sender: FDA-Public Use
  Company Number: US-JNJFOC-20150116830

PATIENT
  Age: 16 Year
  Sex: Male
  Weight: 54.43 kg

DRUGS (2)
  1. ZYRTEC 10MG IR TABLET [Suspect]
     Active Substance: CETIRIZINE HYDROCHLORIDE
     Route: 048
  2. ZYRTEC 10MG IR TABLET [Suspect]
     Active Substance: CETIRIZINE HYDROCHLORIDE
     Indication: MULTIPLE ALLERGIES
     Dosage: ONE TABLET EVERY DAY
     Route: 048
     Dates: end: 20150121

REACTIONS (3)
  - Expired product administered [Unknown]
  - Product expiration date issue [Unknown]
  - Drug ineffective [Unknown]
